FAERS Safety Report 9054681 (Version 1)
Quarter: 2013Q1

REPORT INFORMATION
  Report Type: Spontaneous
  Country: IT (occurrence: IT)
  Receive Date: 20130208
  Receipt Date: 20130208
  Transmission Date: 20140127
  Serious: Yes (Hospitalization)
  Sender: FDA-Public Use
  Company Number: IT-JNJFOC-20130200846

PATIENT
  Age: 79 None
  Sex: Female

DRUGS (2)
  1. TRAMADOL HYDROCHLORIDE [Suspect]
     Indication: BACK PAIN
     Route: 048
     Dates: start: 20121216, end: 20121220
  2. AULIN [Suspect]
     Indication: BACK PAIN
     Route: 048
     Dates: start: 20121210, end: 20121216

REACTIONS (2)
  - Vomiting [Recovering/Resolving]
  - Gastritis [Recovering/Resolving]
